FAERS Safety Report 9043209 (Version 1)
Quarter: 2013Q1

REPORT INFORMATION
  Report Type: Report from Study
  Country: US (occurrence: US)
  Receive Date: 20130129
  Receipt Date: 20130129
  Transmission Date: 20140127
  Serious: No
  Sender: FDA-Public Use
  Company Number: US-ABBOTT-12P-163-0914252-00

PATIENT
  Sex: Female
  Weight: 63.56 kg

DRUGS (6)
  1. HUMIRA 40 MG/0.8 ML PEN [Suspect]
     Indication: CROHN^S DISEASE
     Dates: start: 201106, end: 201106
  2. HUMIRA 40 MG/0.8 ML PEN [Suspect]
     Indication: ABDOMINAL PAIN
  3. HUMIRA 40 MG/0.8 ML PEN [Suspect]
     Dates: end: 201110
  4. BENAZEPRIL HYDROCHLORIDE\HYDROCHLOROTHIAZIDE [Suspect]
     Indication: HYPERTENSION
     Dosage: 10/12.5 MG
  5. BENAZEPRIL/HCTZ [Suspect]
     Dosage: 10/12.5 MG, DAILY
  6. UNNAMED MEDICATION [Concomitant]
     Indication: HYPERTENSION

REACTIONS (4)
  - Gastrointestinal pain [Recovered/Resolved]
  - Cough [Recovered/Resolved]
  - Insomnia [Recovered/Resolved]
  - Rhinorrhoea [Recovered/Resolved]
